FAERS Safety Report 9314039 (Version 3)
Quarter: 2013Q3

REPORT INFORMATION
  Report Type: Report from Study
  Country: DE (occurrence: DE)
  Receive Date: 20130529
  Receipt Date: 20130724
  Transmission Date: 20140515
  Serious: Yes (Hospitalization, Disabling)
  Sender: FDA-Public Use
  Company Number: DE-UCBSA-086822

PATIENT
  Sex: Male
  Weight: 87 kg

DRUGS (10)
  1. CIMZIA [Suspect]
     Indication: RHEUMATOID ARTHRITIS
     Route: 058
     Dates: start: 20111111, end: 20121219
  2. PREDNISOLONE [Concomitant]
     Indication: RHEUMATOID ARTHRITIS
     Route: 048
     Dates: start: 20080825
  3. FOLIC ACID [Concomitant]
     Indication: PRODUCT USED FOR UNKNOWN INDICATION
     Dosage: DOSE : 5 MG,  FREQUENCY : QS
     Route: 048
     Dates: start: 20090924
  4. METHOTREXATE [Concomitant]
     Indication: RHEUMATOID ARTHRITIS
     Dosage: DOSE : 15  MG FREQUENCY : QS
     Route: 058
     Dates: start: 20080825
  5. DEKRISTOL [Concomitant]
     Indication: OSTEOPOROSIS
     Dosage: 20000 IU ONCE MONTHLY
     Route: 048
     Dates: start: 20100218
  6. MARCUMAR [Concomitant]
     Indication: PULMONARY EMBOLISM
     Dosage: DOSE: AS NEEDED
     Dates: start: 201003
  7. NOVALMINSULFAT [Concomitant]
     Indication: PAIN
     Dates: start: 20120222, end: 20120229
  8. HEPARINNATRIUM [Concomitant]
     Indication: THROMBOSIS PROPHYLAXIS
     Route: 058
     Dates: start: 20120222, end: 20120404
  9. AMLODIPINE [Concomitant]
     Indication: HYPERTENSION
  10. HCT-BETA [Concomitant]
     Indication: HYPERTENSION

REACTIONS (2)
  - Nephrolithiasis [Recovered/Resolved]
  - Bone infarction [Not Recovered/Not Resolved]
